FAERS Safety Report 12302844 (Version 1)
Quarter: 2016Q2

REPORT INFORMATION
  Report Type: Spontaneous
  Country: US (occurrence: US)
  Receive Date: 20160426
  Receipt Date: 20160426
  Transmission Date: 20160815
  Serious: No
  Sender: FDA-Public Use
  Company Number: US-TEVA-647886ACC

PATIENT
  Age: 17 Year
  Sex: Female
  Weight: 86.26 kg

DRUGS (2)
  1. PLAN B ONE-STEP [Suspect]
     Active Substance: LEVONORGESTREL
     Indication: POST COITAL CONTRACEPTION
  2. ALLEGRA [Concomitant]
     Active Substance: FEXOFENADINE HYDROCHLORIDE
     Indication: SEASONAL ALLERGY
     Dates: start: 20160328

REACTIONS (7)
  - Throat irritation [Not Recovered/Not Resolved]
  - Cough [Not Recovered/Not Resolved]
  - Sneezing [Not Recovered/Not Resolved]
  - Hot flush [Recovered/Resolved]
  - Dysmenorrhoea [Not Recovered/Not Resolved]
  - Nausea [Not Recovered/Not Resolved]
  - Headache [Not Recovered/Not Resolved]

NARRATIVE: CASE EVENT DATE: 20160322
